FAERS Safety Report 20590207 (Version 1)
Quarter: 2022Q1

REPORT INFORMATION
  Report Type: Spontaneous
  Country: ES (occurrence: ES)
  Receive Date: 20220314
  Receipt Date: 20220314
  Transmission Date: 20220423
  Serious: Yes (Other)
  Sender: FDA-Public Use
  Company Number: ES-PURDUE-USA-2022-0291930

PATIENT
  Age: 43 Year
  Sex: Male

DRUGS (1)
  1. FENOFIBRATE [Suspect]
     Active Substance: FENOFIBRATE
     Indication: Hypertriglyceridaemia
     Dosage: 145 MG, Q24H
     Route: 065

REACTIONS (2)
  - Hepatotoxicity [Recovered/Resolved]
  - Pulmonary toxicity [Recovered/Resolved]
